FAERS Safety Report 4543946-6 (Version None)
Quarter: 2005Q1

REPORT INFORMATION
  Report Type: 
  Country: None (occurrence: None)
  Receive Date: 20050103
  Receipt Date: 20040830
  Transmission Date: 20050727
  Serious: Yes (Hospitalization)
  Sender: FDA-Public Use
  Company Number: GXKR2004DE00592

PATIENT
  Age: 49 Year
  Sex: Male

DRUGS (2)
  1. FUROSEMIDE (NGX) (FUROSEMIDE) [Suspect]
     Indication: HYPERTENSION
     Dosage: ORAL
     Route: 048
  2. ACE INHIBITOR NOS (NO INGREDIENTS/SUBSTANCES) [Concomitant]

REACTIONS (8)
  - ANAEMIA [None]
  - COLITIS ISCHAEMIC [None]
  - COLONIC STENOSIS [None]
  - FATIGUE [None]
  - GASTROINTESTINAL DYSPLASIA [None]
  - GASTROINTESTINAL HAEMORRHAGE [None]
  - LARGE INTESTINAL ULCER [None]
  - WEIGHT DECREASED [None]
